FAERS Safety Report 7909846-6 (Version None)
Quarter: 2011Q4

REPORT INFORMATION
  Report Type: 
  Country: None (occurrence: None)
  Receive Date: 20111111
  Receipt Date: 20111103
  Transmission Date: 20120403
  Serious: Yes (Other)
  Sender: FDA-Public Use
  Company Number: CA-MERCK-1109USA03395

PATIENT
  Age: 71 Year
  Sex: Male

DRUGS (1)
  1. JANUVIA [Suspect]
     Indication: TYPE 2 DIABETES MELLITUS
     Route: 048
     Dates: start: 20090101

REACTIONS (18)
  - DRY GANGRENE [None]
  - HYPERPARATHYROIDISM [None]
  - CHOLANGITIS CHRONIC [None]
  - PERIPHERAL VASCULAR DISORDER [None]
  - TRANSPLANT FAILURE [None]
  - GRAFT THROMBOSIS [None]
  - FEMORAL ARTERY OCCLUSION [None]
  - PANCREATIC DISORDER [None]
  - ILIAC ARTERY OCCLUSION [None]
  - COGNITIVE DISORDER [None]
  - NAUSEA [None]
  - INTERMITTENT CLAUDICATION [None]
  - BILE DUCT NECROSIS [None]
  - ANASTOMOTIC STENOSIS [None]
  - AORTIC ANEURYSM [None]
  - SPLENIC INFARCTION [None]
  - SLEEP APNOEA SYNDROME [None]
  - CHOLELITHIASIS [None]
